FAERS Safety Report 4507557-0 (Version None)
Quarter: 2004Q4

REPORT INFORMATION
  Report Type: 
  Country: None (occurrence: None)
  Receive Date: 20041118
  Receipt Date: 20041111
  Transmission Date: 20050328
  Serious: Yes (Hospitalization, Other)
  Sender: FDA-Public Use
  Company Number: HQWYE390811NOV04

PATIENT
  Age: 87 Year
  Sex: Female

DRUGS (3)
  1. CORDARONE [Suspect]
     Dosage: 200 MG 5X PER 1 WK, ORAL
     Route: 048
     Dates: start: 20030101
  2. FENOFIBRATE [Suspect]
     Dosage: 200 MG 1X PER 1 DAY, ORAL
     Route: 048
     Dates: start: 20030101
  3. PREVISCAN (FLUINDIONE, ) [Suspect]
     Dosage: 20 MG 1X PER 1 DAY, ORAL
     Route: 048
     Dates: start: 20040922, end: 20040929

REACTIONS (3)
  - DRUG INTERACTION [None]
  - GASTROINTESTINAL HAEMORRHAGE [None]
  - INTERNATIONAL NORMALISED RATIO INCREASED [None]
